FAERS Safety Report 7771497-4 (Version None)
Quarter: 2011Q3

REPORT INFORMATION
  Report Type: 
  Country: None (occurrence: None)
  Receive Date: 20110922
  Receipt Date: 20100923
  Transmission Date: 20111222
  Serious: No
  Sender: FDA-Public Use
  Company Number: US-ASTRAZENECA-2010SE44873

PATIENT
  Age: 19 Year
  Sex: Female
  Weight: 56.7 kg

DRUGS (4)
  1. SEROQUEL XR [Suspect]
     Indication: BIPOLAR I DISORDER
     Route: 048
     Dates: start: 20090101, end: 20090101
  2. BIRTH CONTROL PILL [Concomitant]
  3. SEROQUEL XR [Suspect]
     Indication: DEPRESSION
     Route: 048
     Dates: start: 20090101, end: 20090101
  4. DEPLIN [Concomitant]

REACTIONS (2)
  - IRRITABILITY [None]
  - SOMNOLENCE [None]
